FAERS Safety Report 16200361 (Version 2)
Quarter: 2021Q4

REPORT INFORMATION
  Report Type: Spontaneous
  Country: CA (occurrence: CA)
  Receive Date: 20190416
  Receipt Date: 20211014
  Transmission Date: 20220303
  Serious: No
  Sender: FDA-Public Use
  Company Number: CA-LUPIN PHARMACEUTICALS INC.-2019-00250

PATIENT
  Age: 66 Year
  Sex: Female

DRUGS (2)
  1. RIFAMPIN [Interacting]
     Active Substance: RIFAMPIN
     Indication: Mycobacterial infection
     Dosage: UNK
     Route: 065
  2. WARFARIN [Interacting]
     Active Substance: WARFARIN
     Indication: Cardiac ventricular thrombosis
     Dosage: 5 MG, QD
     Route: 065

REACTIONS (2)
  - Drug interaction [Unknown]
  - Anticoagulation drug level above therapeutic [Unknown]
